FAERS Safety Report 6404264-4 (Version None)
Quarter: 2009Q4

REPORT INFORMATION
  Report Type: 
  Country: None (occurrence: None)
  Receive Date: 20091016
  Receipt Date: 20091012
  Transmission Date: 20100525
  Serious: Yes (Death)
  Sender: FDA-Public Use
  Company Number: A0811884A

PATIENT
  Age: 59 Year
  Sex: Female

DRUGS (2)
  1. TYKERB [Suspect]
     Indication: BREAST CANCER
     Dosage: 1250MG PER DAY
     Route: 065
  2. CAPECITABINE [Suspect]
     Indication: BREAST CANCER
     Dosage: 2000MGM2 PER DAY

REACTIONS (9)
  - ASTHENIA [None]
  - BLOOD CORTISOL DECREASED [None]
  - DIARRHOEA [None]
  - GENERAL PHYSICAL HEALTH DETERIORATION [None]
  - HEADACHE [None]
  - LUNG DISORDER [None]
  - PALMAR-PLANTAR ERYTHRODYSAESTHESIA SYNDROME [None]
  - UPPER RESPIRATORY TRACT INFECTION [None]
  - VOMITING [None]
